FAERS Safety Report 12134957 (Version 1)
Quarter: 2016Q1

REPORT INFORMATION
  Report Type: Other
  Country: US (occurrence: US)
  Receive Date: 20160301
  Receipt Date: 20160301
  Transmission Date: 20160526
  Serious: Yes (Other)
  Sender: FDA-Public Use
  Company Number: US-ACORDA-ACO_120253_2015

PATIENT
  Sex: Female

DRUGS (1)
  1. AMPYRA [Suspect]
     Active Substance: DALFAMPRIDINE
     Indication: PRODUCT USED FOR UNKNOWN INDICATION
     Dosage: 10 MG /ONE TABLET/TWICE DAILY
     Route: 048
     Dates: start: 20141214, end: 20151218

REACTIONS (11)
  - Gait disturbance [Recovered/Resolved]
  - Coordination abnormal [Recovered/Resolved]
  - Anal incontinence [Unknown]
  - Metamorphopsia [Unknown]
  - Progressive multiple sclerosis [Unknown]
  - Muscular weakness [Unknown]
  - Activities of daily living impaired [Recovered/Resolved]
  - Emotional disorder [Unknown]
  - Drug ineffective [Unknown]
  - Movement disorder [Unknown]
  - Mobility decreased [Unknown]
